FAERS Safety Report 8050506-1 (Version None)
Quarter: 2012Q1

REPORT INFORMATION
  Report Type: 
  Country: None (occurrence: None)
  Receive Date: 20120117
  Receipt Date: 20120111
  Transmission Date: 20120608
  Serious: Yes (Death, Hospitalization, Other)
  Sender: FDA-Public Use
  Company Number: JP-CELGENEUS-087-50794-11043766

PATIENT
  Sex: Female

DRUGS (6)
  1. VIDAZA [Suspect]
     Dosage: 100 MILLIGRAM/SQ. METER
     Route: 041
     Dates: start: 20110323, end: 20110329
  2. SENNARIDE [Suspect]
     Dosage: 2 DOSAGE FORMS
     Route: 048
  3. AKIRIDEN [Suspect]
     Dosage: 2 DOSAGE FORMS
     Route: 048
  4. FEMARA [Suspect]
     Dosage: 1 DOSAGE FORMS
     Route: 048
  5. ROHYPNOL [Suspect]
     Dosage: 1 DOSAGE FORMS
     Route: 048
  6. RISPERIDONE [Suspect]
     Dosage: 4 DOSAGE FORMS
     Route: 048

REACTIONS (3)
  - PNEUMONIA [None]
  - THROMBOCYTOPENIA [None]
  - LEUKOPENIA [None]
